FAERS Safety Report 24838302 (Version 1)
Quarter: 2025Q1

REPORT INFORMATION
  Report Type: Spontaneous
  Country: US (occurrence: US)
  Receive Date: 20250113
  Receipt Date: 20250113
  Transmission Date: 20250408
  Serious: No
  Sender: PFIZER
  Company Number: US-PFIZER INC-PV202500004486

PATIENT
  Age: 62 Year
  Sex: Female

DRUGS (2)
  1. LORBRENA [Suspect]
     Active Substance: LORLATINIB
     Indication: Non-small cell lung cancer metastatic
     Dates: start: 202411
  2. LORBRENA [Suspect]
     Active Substance: LORLATINIB

REACTIONS (3)
  - Brain fog [Recovered/Resolved]
  - Fatigue [Not Recovered/Not Resolved]
  - Dizziness [Recovered/Resolved]
